FAERS Safety Report 7007520-4 (Version None)
Quarter: 2010Q3

REPORT INFORMATION
  Report Type: 
  Country: None (occurrence: None)
  Receive Date: 20100915
  Receipt Date: 20100908
  Transmission Date: 20110219
  Serious: Yes (Hospitalization)
  Sender: FDA-Public Use
  Company Number: 2010SP043298

PATIENT
  Age: 64 Year
  Sex: Female

DRUGS (12)
  1. MIRTAZAPINE [Suspect]
     Indication: DEPRESSION
     Dosage: 30 MG; QD; PO
     Route: 048
     Dates: start: 20100720, end: 20100805
  2. CARBOPLATIN [Concomitant]
  3. PACLITAXEL [Concomitant]
  4. HEVACIZUMAB [Concomitant]
  5. LOXOPROFEN SODIUM [Concomitant]
  6. HYDRATE [Concomitant]
  7. REBAMIPIDE [Concomitant]
  8. LANSOPRAZOLE [Concomitant]
  9. GRANISETRON HYDROCHLORIDE [Concomitant]
  10. DEXAMETHASONE PHOSPHATE [Concomitant]
  11. RANITIDINE HYDROCHLORIDE [Concomitant]
  12. CEFOZOPRAN HYDROCHLORIDE [Concomitant]

REACTIONS (4)
  - HEADACHE [None]
  - INAPPROPRIATE ANTIDIURETIC HORMONE SECRETION [None]
  - MALAISE [None]
  - VOMITING [None]
